FAERS Safety Report 13597426 (Version 32)
Quarter: 2021Q1

REPORT INFORMATION
  Report Type: Spontaneous
  Country: US (occurrence: US)
  Receive Date: 20170531
  Receipt Date: 20210129
  Transmission Date: 20210419
  Serious: No
  Sender: FDA-Public Use
  Company Number: US-PFIZER INC-2017135181

PATIENT
  Age: 56 Year
  Sex: Female
  Weight: 73 kg

DRUGS (21)
  1. DILANTIN [Suspect]
     Active Substance: PHENYTOIN
     Indication: ANEURYSM
     Dosage: UNK
     Route: 048
     Dates: start: 1998
  2. DILANTIN [Suspect]
     Active Substance: PHENYTOIN
     Dosage: 400 MG, DAILY (4?100MG CAPS DAILY:2 IN MORNING 6?7AM,1 ABOUT 12:00?12:30PM,1 NO LATER THAN 5PM)
     Route: 048
  3. DILANTIN [Suspect]
     Active Substance: PHENYTOIN
     Dosage: 400 MG, DAILY
     Route: 048
  4. SIMVASTATIN. [Concomitant]
     Active Substance: SIMVASTATIN
     Indication: BLOOD CHOLESTEROL INCREASED
     Dosage: 0.25 MG, 1X/DAY
  5. TIMOLOL. [Concomitant]
     Active Substance: TIMOLOL
     Indication: EYE DISORDER
     Dosage: UNK
     Dates: start: 2005
  6. DILANTIN [Suspect]
     Active Substance: PHENYTOIN
     Indication: PARTIAL SEIZURES
     Dosage: 400 MG, ONCE A DAY
     Route: 048
     Dates: start: 1996
  7. GABAPENTIN. [Concomitant]
     Active Substance: GABAPENTIN
     Indication: HEADACHE
     Dosage: 600 MG, 3X/DAY
     Route: 048
  8. DILANTIN [Suspect]
     Active Substance: PHENYTOIN
     Dosage: 400 MG, DAILY (TWO AT 8 IN MORNING TAKE ONE AT 12 NO LATER THAN ONE IN EVENING BET 5?6)
     Route: 048
  9. DILANTIN [Suspect]
     Active Substance: PHENYTOIN
     Dosage: 100 MG, 4X/DAY
     Route: 048
     Dates: start: 2020
  10. DILANTIN [Suspect]
     Active Substance: PHENYTOIN
     Dosage: 400 MG, DAILY
     Route: 048
  11. DILANTIN [Suspect]
     Active Substance: PHENYTOIN
     Indication: FOCAL DYSCOGNITIVE SEIZURES
     Dosage: 400 MG, DAILY (2 CAPS IN MORNING, 1 CAP B/N 12 AND 1, AND 1 CAP IN EVENING NO LATER THAN 17:30)
     Route: 048
     Dates: start: 1995
  12. DILANTIN [Suspect]
     Active Substance: PHENYTOIN
     Dosage: 400 MG, DAILY (100MG CAPSULES, 4 AT ONE TIME A DAY)
     Route: 048
     Dates: start: 1997
  13. GABAPENTIN. [Concomitant]
     Active Substance: GABAPENTIN
     Indication: ANEURYSM
  14. DILANTIN [Suspect]
     Active Substance: PHENYTOIN
     Indication: SEIZURE
     Dosage: 400 MG, DAILY (TAKES TWO IN THE MORNING, ONE AT NOON,AND ONE IN THE EVENING)
     Route: 048
     Dates: end: 201701
  15. DILANTIN [Suspect]
     Active Substance: PHENYTOIN
     Dosage: UNK
     Route: 048
     Dates: start: 1998
  16. DILANTIN [Suspect]
     Active Substance: PHENYTOIN
     Dosage: 100 MG, 3X/DAY (TWO IN THE MORNING AND ONE LATE IN THE EVENING AT 5)
     Route: 048
  17. GABAPENTIN. [Concomitant]
     Active Substance: GABAPENTIN
     Indication: SEIZURE
     Dosage: 800 MG, 3X/DAY
  18. BAYER ASPIRIN [Concomitant]
     Active Substance: ASPIRIN
     Indication: ANTICOAGULANT THERAPY
     Dosage: 81 MG, 1X/DAY (ONCE IN THE MORNING)
     Dates: start: 2015
  19. DILANTIN [Suspect]
     Active Substance: PHENYTOIN
     Indication: ARTERIOVENOUS MALFORMATION
     Dosage: 400 MG, DAILY (2 BY MOUTH IN THE MORNING, 1 AT NOON, 1 AT 5PM)
     Route: 048
  20. DILANTIN [Suspect]
     Active Substance: PHENYTOIN
     Dosage: 100 MG, FOUR TIMES A DAY
     Route: 048
  21. SIMVASTATIN. [Concomitant]
     Active Substance: SIMVASTATIN
     Dosage: 20 MG, 1X/DAY
     Dates: start: 2000

REACTIONS (14)
  - Intentional product misuse [Unknown]
  - Fear [Recovered/Resolved]
  - Weight increased [Unknown]
  - Product dose omission issue [Unknown]
  - Tremor [Unknown]
  - Feeling abnormal [Unknown]
  - Asthenia [Recovered/Resolved]
  - Nasopharyngitis [Recovered/Resolved]
  - Depressed mood [Unknown]
  - Cough [Recovered/Resolved]
  - Speech disorder [Unknown]
  - Headache [Unknown]
  - Therapeutic product effect incomplete [Unknown]
  - Chills [Not Recovered/Not Resolved]

NARRATIVE: CASE EVENT DATE: 2017
